FAERS Safety Report 8503686-5 (Version None)
Quarter: 2012Q3

REPORT INFORMATION
  Report Type: 
  Country: None (occurrence: None)
  Receive Date: 20120711
  Receipt Date: 20120626
  Transmission Date: 20120928
  Serious: No
  Sender: FDA-Public Use
  Company Number: CA-JNJFOC-20120614656

PATIENT
  Sex: Male
  Weight: 115.67 kg

DRUGS (1)
  1. REMICADE [Suspect]
     Indication: CROHN'S DISEASE
     Dosage: 0, 2, 6 WEEKS
     Route: 042
     Dates: start: 20120525

REACTIONS (1)
  - TOOTH ABSCESS [None]
